FAERS Safety Report 5392299-2 (Version None)
Quarter: 2007Q3

REPORT INFORMATION
  Report Type: 
  Country: None (occurrence: None)
  Receive Date: 20070720
  Receipt Date: 20070710
  Transmission Date: 20080115
  Serious: Yes (Other)
  Sender: FDA-Public Use
  Company Number: DE-ROCHE-506268

PATIENT
  Sex: Male

DRUGS (5)
  1. UNAT [Suspect]
     Indication: DRUG USE FOR UNKNOWN INDICATION
     Route: 048
     Dates: start: 20030101
  2. LISINOPRIL [Suspect]
     Indication: DRUG USE FOR UNKNOWN INDICATION
     Route: 048
     Dates: start: 20060101, end: 20070620
  3. MARCUMAR [Concomitant]
     Route: 048
     Dates: start: 20030101
  4. METOPROLOL TARTRATE [Concomitant]
     Route: 048
     Dates: start: 20060101
  5. LEVOTHYROXINE SODIUM [Concomitant]
     Route: 048

REACTIONS (3)
  - DIPLOPIA [None]
  - FACE OEDEMA [None]
  - HEPATITIS [None]
